FAERS Safety Report 9462934 (Version 1)
Quarter: 2013Q3

REPORT INFORMATION
  Report Type: Spontaneous
  Country: AU (occurrence: AU)
  Receive Date: 20130816
  Receipt Date: 20130816
  Transmission Date: 20140515
  Serious: No
  Sender: FDA-Public Use
  Company Number: AU-009507513-1308AUS006126

PATIENT
  Age: 18 Month
  Sex: 0

DRUGS (1)
  1. ELEUPHRAT [Suspect]
     Dosage: UNK
     Route: 048

REACTIONS (2)
  - Accidental exposure to product by child [Unknown]
  - Incorrect route of drug administration [Unknown]
